FAERS Safety Report 13100686 (Version 1)
Quarter: 2017Q1

REPORT INFORMATION
  Report Type: Spontaneous
  Country: JP (occurrence: JP)
  Receive Date: 20170110
  Receipt Date: 20170110
  Transmission Date: 20170428
  Serious: Yes (Other)
  Sender: FDA-Public Use
  Company Number: PHJP2017JP000447

PATIENT

DRUGS (2)
  1. VOTRIENT [Suspect]
     Active Substance: PAZOPANIB HYDROCHLORIDE
     Indication: RENAL CELL CARCINOMA
     Dosage: 400 MG, QD
     Route: 048
  2. VOTRIENT [Suspect]
     Active Substance: PAZOPANIB HYDROCHLORIDE
     Dosage: 400 MG, UNK (ADMINISTERED AT 2 TABLETS FOR 2 WEEKS, FOLLOWED BY 1 TO 2 WEEK REST)
     Route: 048

REACTIONS (3)
  - Product use issue [Unknown]
  - Bone marrow failure [Unknown]
  - White blood cell count decreased [Unknown]
